FAERS Safety Report 16070013 (Version 3)
Quarter: 2019Q4

REPORT INFORMATION
  Report Type: Report from Study
  Country: ES (occurrence: ES)
  Receive Date: 20190314
  Receipt Date: 20191001
  Transmission Date: 20200122
  Serious: Yes (Disabling, Other)
  Sender: FDA-Public Use
  Company Number: ES-TEVA-2019-ES-1023373

PATIENT
  Age: 47 Year
  Sex: Male

DRUGS (1)
  1. COPAXONE [Suspect]
     Active Substance: GLATIRAMER ACETATE
     Indication: RELAPSING-REMITTING MULTIPLE SCLEROSIS
     Route: 058
     Dates: start: 20170414

REACTIONS (6)
  - Monoplegia [Not Recovered/Not Resolved]
  - Haematoma [Recovering/Resolving]
  - Vein rupture [Recovering/Resolving]
  - Device leakage [Recovering/Resolving]
  - Nerve compression [Recovering/Resolving]
  - Radial nerve injury [Recovering/Resolving]

NARRATIVE: CASE EVENT DATE: 2019
